FAERS Safety Report 23780174 (Version 1)
Quarter: 2024Q2

REPORT INFORMATION
  Report Type: Spontaneous
  Country: US (occurrence: US)
  Receive Date: 20240424
  Receipt Date: 20240424
  Transmission Date: 20240716
  Serious: No
  Sender: FDA-Public Use
  Company Number: US-JNJFOC-20240400137

PATIENT

DRUGS (1)
  1. ZYRTEC [Suspect]
     Active Substance: CETIRIZINE HYDROCHLORIDE
     Indication: Hypersensitivity
     Dosage: STARTING NEAR 2011 AND TAPERING IN ABOUT 2017, ONE ZYRTEC A DAY
     Route: 065
     Dates: start: 2011

REACTIONS (1)
  - Dizziness [Not Recovered/Not Resolved]
